FAERS Safety Report 8142404-X (Version None)
Quarter: 2012Q1

REPORT INFORMATION
  Report Type: 
  Country: None (occurrence: None)
  Receive Date: 20120216
  Receipt Date: 20120209
  Transmission Date: 20120608
  Serious: Yes (Congenital Anomaly)
  Sender: FDA-Public Use
  Company Number: GB-EISAI INC-E2090-01981-SPO-GB

PATIENT

DRUGS (2)
  1. VALPROATE SODIUM [Suspect]
     Route: 064
  2. ZONEGRAN [Suspect]
     Dosage: UNKNOWN
     Route: 064

REACTIONS (2)
  - FOETAL ANTICONVULSANT SYNDROME [None]
  - MATERNAL EXPOSURE DURING PREGNANCY [None]
